FAERS Safety Report 8181298-3 (Version None)
Quarter: 2012Q1

REPORT INFORMATION
  Report Type: 
  Country: None (occurrence: None)
  Receive Date: 20120302
  Receipt Date: 20120302
  Transmission Date: 20120608
  Serious: Yes (Hospitalization)
  Sender: FDA-Public Use
  Company Number: IT-BAYER-2012-020833

PATIENT
  Sex: Male
  Weight: 95 kg

DRUGS (1)
  1. SORAFENIB (RAF KINASE INHIBITOR) [Suspect]
     Indication: HEPATIC NEOPLASM MALIGNANT
     Dosage: 200 MG, BID
     Route: 048

REACTIONS (4)
  - ASCITES [None]
  - INFECTIOUS PERITONITIS [None]
  - HEPATIC FAILURE [None]
  - PORTAL VEIN THROMBOSIS [None]
